FAERS Safety Report 10157915 (Version 4)
Quarter: 2014Q4

REPORT INFORMATION
  Report Type: Spontaneous
  Country: US (occurrence: US)
  Receive Date: 20140507
  Receipt Date: 20141003
  Transmission Date: 20150528
  Serious: Yes (Other)
  Sender: FDA-Public Use
  Company Number: US-GLAXOSMITHKLINE-A0777580A

PATIENT
  Sex: Female

DRUGS (17)
  1. ALBUTEROL. [Concomitant]
     Active Substance: ALBUTEROL
  2. ZOCOR [Concomitant]
     Active Substance: SIMVASTATIN
  3. ICAPS [Concomitant]
     Active Substance: MINERALS\VITAMINS
  4. POTASSIUM CHLORIDE. [Concomitant]
     Active Substance: POTASSIUM CHLORIDE
  5. HCTZ [Concomitant]
     Active Substance: HYDROCHLOROTHIAZIDE
  6. MULTIVITAMIN + MINERAL [Concomitant]
  7. SENIOR MULTIVITAMIN [Concomitant]
  8. ACIDOPHILUS [Concomitant]
     Active Substance: LACTOBACILLUS ACIDOPHILUS
  9. ASPIRIN. [Concomitant]
     Active Substance: ASPIRIN
  10. ADVAIR HFA [Suspect]
     Active Substance: FLUTICASONE PROPIONATE\SALMETEROL XINAFOATE
     Indication: CHRONIC OBSTRUCTIVE PULMONARY DISEASE
     Dosage: 1PUFF TWICE PER DAY
     Route: 055
     Dates: start: 2006
  11. NYSTATIN. [Concomitant]
     Active Substance: NYSTATIN
  12. CALCIUM + D [Concomitant]
     Active Substance: CALCIUM\VITAMIN D
  13. SINGULAIR [Concomitant]
     Active Substance: MONTELUKAST SODIUM
  14. VENTOLIN [Concomitant]
     Active Substance: ALBUTEROL SULFATE
  15. PRESERVISION [Concomitant]
  16. OMEPRAZOLE. [Concomitant]
     Active Substance: OMEPRAZOLE
  17. UNSPECIFIED MEDICATION [Concomitant]
     Active Substance: UNSPECIFIED INGREDIENT
     Indication: MACULAR DEGENERATION

REACTIONS (8)
  - Optic ischaemic neuropathy [Unknown]
  - Product quality issue [Unknown]
  - Overdose [Unknown]
  - Insomnia [Unknown]
  - Drug ineffective [Unknown]
  - Dyspnoea [Unknown]
  - Oral discomfort [Unknown]
  - Hypertension [Unknown]
